FAERS Safety Report 12066710 (Version 1)
Quarter: 2016Q1

REPORT INFORMATION
  Report Type: Spontaneous
  Country: US (occurrence: US)
  Receive Date: 20160211
  Receipt Date: 20160211
  Transmission Date: 20160526
  Serious: No
  Sender: FDA-Public Use
  Company Number: US-ASTRAZENECA-2016SE11145

PATIENT
  Sex: Female
  Weight: 56.7 kg

DRUGS (16)
  1. NEXIUM [Suspect]
     Active Substance: ESOMEPRAZOLE MAGNESIUM
     Indication: IRRITABLE BOWEL SYNDROME
     Dosage: DAILY
     Route: 048
     Dates: start: 2014
  2. TYLENOL EXTRA STRENGTH [Concomitant]
     Active Substance: ACETAMINOPHEN
     Indication: HEADACHE
     Dosage: DAILY
     Route: 048
     Dates: start: 2015
  3. BENTYL [Concomitant]
     Active Substance: DICYCLOMINE HYDROCHLORIDE
     Indication: MUSCLE SPASMS
     Route: 048
     Dates: start: 2001
  4. NEXIUM [Suspect]
     Active Substance: ESOMEPRAZOLE MAGNESIUM
     Indication: IRRITABLE BOWEL SYNDROME
     Dosage: 40 MG, TWO TIMES A DAY FREQUENCY PRESCRIBED AS NEEDED
     Route: 048
     Dates: start: 2006, end: 2014
  5. VITAMIN  D 3 [Concomitant]
     Indication: BONE DISORDER
     Route: 048
     Dates: start: 2013
  6. NEXIUM [Suspect]
     Active Substance: ESOMEPRAZOLE MAGNESIUM
     Indication: IRRITABLE BOWEL SYNDROME
     Route: 048
     Dates: start: 2001, end: 2006
  7. NEXIUM [Suspect]
     Active Substance: ESOMEPRAZOLE MAGNESIUM
     Indication: GASTROOESOPHAGEAL REFLUX DISEASE
     Dosage: DAILY
     Route: 048
     Dates: start: 2014
  8. OMEPRAZOLE. [Suspect]
     Active Substance: OMEPRAZOLE
     Indication: GASTROOESOPHAGEAL REFLUX DISEASE
     Dosage: ALTERNATE BETWEEN NEXIUM RX AND OMEPRAZOLE RX
     Route: 048
     Dates: start: 2006, end: 2014
  9. OMEPRAZOLE. [Suspect]
     Active Substance: OMEPRAZOLE
     Indication: IRRITABLE BOWEL SYNDROME
     Dosage: ALTERNATE BETWEEN NEXIUM RX AND OMEPRAZOLE RX
     Route: 048
     Dates: start: 2006, end: 2014
  10. NEXIUM [Suspect]
     Active Substance: ESOMEPRAZOLE MAGNESIUM
     Indication: IRRITABLE BOWEL SYNDROME
     Route: 048
     Dates: start: 20160125
  11. ZOFRAN [Concomitant]
     Active Substance: ONDANSETRON HYDROCHLORIDE
     Indication: NAUSEA
     Route: 048
     Dates: start: 2015
  12. MAGNESIUM [Concomitant]
     Active Substance: MAGNESIUM
     Indication: OCULAR DISCOMFORT
     Dosage: DAILY
     Route: 048
     Dates: start: 201511
  13. PROBIOTIC 40 BILLION CULTURES [Concomitant]
     Indication: IRRITABLE BOWEL SYNDROME
     Dosage: 40, DAILY
     Route: 048
     Dates: start: 201512
  14. NEXIUM [Suspect]
     Active Substance: ESOMEPRAZOLE MAGNESIUM
     Indication: GASTROOESOPHAGEAL REFLUX DISEASE
     Route: 048
     Dates: start: 2001, end: 2006
  15. NEXIUM [Suspect]
     Active Substance: ESOMEPRAZOLE MAGNESIUM
     Indication: GASTROOESOPHAGEAL REFLUX DISEASE
     Dosage: 40 MG, TWO TIMES A DAY FREQUENCY PRESCRIBED AS NEEDED
     Route: 048
     Dates: start: 2006, end: 2014
  16. NEXIUM [Suspect]
     Active Substance: ESOMEPRAZOLE MAGNESIUM
     Indication: GASTROOESOPHAGEAL REFLUX DISEASE
     Route: 048
     Dates: start: 20160125

REACTIONS (5)
  - Off label use [Unknown]
  - Headache [Unknown]
  - Intentional product misuse [Unknown]
  - Irritable bowel syndrome [Unknown]
  - Dyspepsia [Unknown]
